FAERS Safety Report 25060082 (Version 1)
Quarter: 2025Q1

REPORT INFORMATION
  Report Type: Spontaneous
  Country: US (occurrence: US)
  Receive Date: 20250310
  Receipt Date: 20250310
  Transmission Date: 20250409
  Serious: No
  Sender: SANOFI AVENTIS
  Company Number: US-SA-2025SA069605

PATIENT
  Sex: Male

DRUGS (9)
  1. KEVZARA [Suspect]
     Active Substance: SARILUMAB
     Indication: Rheumatoid arthritis
     Dosage: 200 MG, QOW
     Route: 058
  2. FLUTICASONE [Concomitant]
     Active Substance: FLUTICASONE
  3. FOLIC ACID [Concomitant]
     Active Substance: FOLIC ACID
  4. GABAPENTIN [Concomitant]
     Active Substance: GABAPENTIN
  5. HYDROXYCHLOROQUINE [Concomitant]
     Active Substance: HYDROXYCHLOROQUINE
  6. METHOTREXATE [Concomitant]
     Active Substance: METHOTREXATE
  7. PRAVASTATIN [Concomitant]
     Active Substance: PRAVASTATIN
  8. SULFASALAZINE [Concomitant]
     Active Substance: SULFASALAZINE
  9. TAMSULOSIN [Concomitant]
     Active Substance: TAMSULOSIN

REACTIONS (1)
  - Somnolence [Not Recovered/Not Resolved]
